FAERS Safety Report 18516499 (Version 1)
Quarter: 2020Q4

REPORT INFORMATION
  Report Type: Spontaneous
  Country: FR (occurrence: FR)
  Receive Date: 20201118
  Receipt Date: 20201118
  Transmission Date: 20210114
  Serious: Yes (Other)
  Sender: FDA-Public Use
  Company Number: FR-TEVA-2020-FR-1848733

PATIENT
  Age: 17 Year
  Sex: Male
  Weight: 67 kg

DRUGS (20)
  1. MEROPENEM PANPHARMA [Suspect]
     Active Substance: MEROPENEM
     Indication: INFECTION
     Dosage: 3 GRAM
     Route: 042
     Dates: start: 20200910, end: 20200917
  2. DAPTOMYCINE MEDAC [Suspect]
     Active Substance: DAPTOMYCIN
     Indication: INFECTION
     Dosage: 750 MG
     Route: 042
     Dates: start: 20200903, end: 20200917
  3. AMIKACINE MYLAN [Suspect]
     Active Substance: AMIKACIN
     Indication: INFECTION
     Route: 042
     Dates: start: 20200910, end: 20200911
  4. ATARAX [Concomitant]
     Active Substance: HYDROXYZINE HYDROCHLORIDE
  5. MORPHINE RENAUDIN [Concomitant]
     Active Substance: MORPHINE
  6. NALBUPHINE MYLAN [Concomitant]
     Active Substance: NALBUPHINE
  7. DEBRIDAT [Concomitant]
     Active Substance: TRIMEBUTINE MALEATE
  8. PLITICAN [Concomitant]
     Active Substance: ALIZAPRIDE HYDROCHLORIDE
  9. LOXEN [Concomitant]
  10. VITAMINE K1 CHEPLAPHARM [Concomitant]
     Active Substance: PHYTONADIONE
  11. KETAMINE RENAUDIN [Concomitant]
     Active Substance: KETAMINE
  12. NEFOPAM MEDISOL [Concomitant]
     Active Substance: NEFOPAM HYDROCHLORIDE
  13. PANTOPRAZOLE SODIUM. [Suspect]
     Active Substance: PANTOPRAZOLE SODIUM
     Indication: GASTROINTESTINAL HAEMORRHAGE
     Route: 042
     Dates: start: 20200909, end: 20200911
  14. AMBISOME [Suspect]
     Active Substance: AMPHOTERICIN B
     Indication: ANTIFUNGAL TREATMENT
     Dosage: 230 MG
     Route: 042
     Dates: start: 20200904, end: 20200917
  15. PARACETAMOL [Concomitant]
     Active Substance: ACETAMINOPHEN
  16. PANTOPRAZOLE [Suspect]
     Active Substance: PANTOPRAZOLE
     Indication: GASTROINTESTINAL HAEMORRHAGE
     Dosage: 80 MG
     Route: 048
     Dates: start: 20200912, end: 20200917
  17. ZOPHREN [Concomitant]
     Active Substance: ONDANSETRON
  18. GRANOCYTE [Concomitant]
     Active Substance: LENOGRASTIM
  19. AMLODIPINE [Concomitant]
     Active Substance: AMLODIPINE BESYLATE
  20. MYCOSTATINE [Concomitant]
     Active Substance: NYSTATIN

REACTIONS (1)
  - Drug reaction with eosinophilia and systemic symptoms [Recovering/Resolving]

NARRATIVE: CASE EVENT DATE: 20200916
